FAERS Safety Report 7639379-6 (Version None)
Quarter: 2011Q3

REPORT INFORMATION
  Report Type: 
  Country: None (occurrence: None)
  Receive Date: 20110722
  Receipt Date: 20110706
  Transmission Date: 20111222
  Serious: Yes (Death, Life-Threatening, Hospitalization, Other)
  Sender: FDA-Public Use
  Company Number: 2011MA008425

PATIENT
  Age: 6 Month
  Sex: Male

DRUGS (2)
  1. IBUPROFEN [Suspect]
     Indication: OTITIS MEDIA
  2. AMOXICILLIN [Suspect]
     Indication: OTITIS MEDIA

REACTIONS (24)
  - NECROSIS [None]
  - THROMBOCYTOPENIA [None]
  - HAEMODYNAMIC INSTABILITY [None]
  - ACUTE RESPIRATORY DISTRESS SYNDROME [None]
  - MULTI-ORGAN FAILURE [None]
  - LEUKOPENIA [None]
  - PNEUMONIA [None]
  - ISCHAEMIA [None]
  - GENERAL PHYSICAL HEALTH DETERIORATION [None]
  - RESPIRATORY FAILURE [None]
  - ILEAL PERFORATION [None]
  - ABDOMINAL DISTENSION [None]
  - RESPIRATORY DISTRESS [None]
  - DIARRHOEA [None]
  - PERINEAL ULCERATION [None]
  - PSEUDOMONAS INFECTION [None]
  - SEPTIC SHOCK [None]
  - BLOOD CULTURE POSITIVE [None]
  - DERMATITIS [None]
  - NECROTISING FASCIITIS [None]
  - OEDEMA [None]
  - TACHYCARDIA [None]
  - ANAEMIA [None]
  - DISSEMINATED INTRAVASCULAR COAGULATION [None]
